FAERS Safety Report 17369446 (Version 6)
Quarter: 2020Q3

REPORT INFORMATION
  Report Type: Report from Study
  Country: None (occurrence: ES)
  Receive Date: 20200130
  Receipt Date: 20200716
  Transmission Date: 20201102
  Serious: Yes (Hospitalization, Other)
  Sender: FDA-Public Use
  Company Number: ES-ABBVIE-20K-144-3254744-00

PATIENT
  Age: 65 Year
  Sex: Male
  Weight: 80 kg

DRUGS (1)
  1. DUODOPA [Suspect]
     Active Substance: CARBIDOPA\LEVODOPA
     Indication: PARKINSON^S DISEASE
     Route: 050
     Dates: start: 20171214

REACTIONS (7)
  - Wrist fracture [Recovered/Resolved]
  - Balance disorder [Not Recovered/Not Resolved]
  - Fall [Recovered/Resolved]
  - Osteoarthritis [Recovered/Resolved]
  - Lumbar vertebral fracture [Recovered/Resolved]
  - Fall [Recovered/Resolved]
  - Osteoporosis [Recovered/Resolved]

NARRATIVE: CASE EVENT DATE: 201912
